FAERS Safety Report 5352503-3 (Version None)
Quarter: 2007Q2

REPORT INFORMATION
  Report Type: 
  Country: None (occurrence: None)
  Receive Date: 20070611
  Receipt Date: 20070528
  Transmission Date: 20071010
  Serious: Yes (Other)
  Sender: FDA-Public Use
  Company Number: JP-AMGEN-US228271

PATIENT
  Sex: Female
  Weight: 57 kg

DRUGS (3)
  1. ENBREL [Suspect]
     Indication: RHEUMATOID ARTHRITIS
     Route: 058
     Dates: start: 20050909, end: 20060714
  2. INTEBAN [Concomitant]
     Route: 048
  3. PREDNISOLONE [Concomitant]
     Route: 048

REACTIONS (1)
  - PSORIASIS [None]
